FAERS Safety Report 5139395-2 (Version None)
Quarter: 2006Q4

REPORT INFORMATION
  Report Type: 
  Country: None (occurrence: None)
  Receive Date: 20061030
  Receipt Date: 20051007
  Transmission Date: 20070319
  Serious: No
  Sender: FDA-Public Use
  Company Number: US-GLAXOSMITHKLINE-A0577536A

PATIENT
  Age: 83 Year
  Sex: Female

DRUGS (9)
  1. SEREVENT [Suspect]
     Indication: DRUG USE FOR UNKNOWN INDICATION
     Dosage: 1PUFF PER DAY
     Route: 055
     Dates: start: 20030901
  2. DYAZIDE [Concomitant]
  3. PREMARIN [Concomitant]
  4. PLAQUENIL [Concomitant]
  5. SYNTHROID [Concomitant]
  6. DITROPAN [Concomitant]
  7. BENICAR [Concomitant]
  8. PREDNISONE TAB [Concomitant]
  9. ELAVIL [Concomitant]

REACTIONS (2)
  - DRUG INEFFECTIVE [None]
  - PHARMACEUTICAL PRODUCT COMPLAINT [None]
